FAERS Safety Report 11914464 (Version 1)
Quarter: 2016Q1

REPORT INFORMATION
  Report Type: Spontaneous
  Country: US (occurrence: US)
  Receive Date: 20160113
  Receipt Date: 20160113
  Transmission Date: 20160526
  Serious: No
  Sender: FDA-Public Use
  Company Number: US-BAYER-2016-006189

PATIENT
  Age: 78 Year
  Sex: Female
  Weight: 90.7 kg

DRUGS (2)
  1. ALEVE [Suspect]
     Active Substance: NAPROXEN SODIUM
     Indication: ARTHRITIS
     Dosage: UNK
  2. PAIN STOPPER EXTRA [Suspect]
     Active Substance: ACETAMINOPHEN\ASPIRIN\CAFFEINE\SALICYLAMIDE
     Indication: ARTHRITIS
     Dosage: 2 DF, PRN
     Route: 048

REACTIONS (4)
  - Skin reaction [None]
  - Wound [None]
  - Expired product administered [None]
  - Abdominal discomfort [None]
